FAERS Safety Report 23789835 (Version 1)
Quarter: 2024Q2

REPORT INFORMATION
  Report Type: Spontaneous
  Country: US (occurrence: None)
  Receive Date: 20240424
  Receipt Date: 20240424
  Transmission Date: 20240716
  Serious: Yes (Hospitalization)
  Sender: FDA-Public Use
  Company Number: None

PATIENT
  Age: 75 Year
  Sex: Male

DRUGS (2)
  1. DICLOFENAC SODIUM [Suspect]
     Active Substance: DICLOFENAC\DICLOFENAC SODIUM
     Indication: Pain
     Dosage: 50 MG BID PO?
     Route: 048
     Dates: start: 20130213, end: 20240124
  2. LISINOPRIL [Suspect]
     Active Substance: LISINOPRIL
     Indication: Hypertension
     Dosage: 10 MG EVERY DAY PO
     Dates: start: 20230724, end: 20240124

REACTIONS (5)
  - Acute kidney injury [None]
  - Blood creatinine increased [None]
  - Residual urine volume increased [None]
  - Haematuria [None]
  - Urinary sediment present [None]

NARRATIVE: CASE EVENT DATE: 20240124
